FAERS Safety Report 13646571 (Version 11)
Quarter: 2019Q2

REPORT INFORMATION
  Report Type: Spontaneous
  Country: US (occurrence: US)
  Receive Date: 20170613
  Receipt Date: 20190611
  Transmission Date: 20190711
  Serious: Yes (Congenital Anomaly, Other)
  Sender: FDA-Public Use
  Company Number: PHEH2017US017861

PATIENT
  Sex: Male

DRUGS (2)
  1. ZOFRAN [Suspect]
     Active Substance: ONDANSETRON HYDROCHLORIDE
     Indication: FOETAL EXPOSURE DURING PREGNANCY
     Dosage: MOTHER DOSE: 04 MG, Q12H, 04 MG, Q12H, 04 MG QD
     Route: 064
  2. ZOFRAN [Suspect]
     Active Substance: ONDANSETRON HYDROCHLORIDE
     Indication: FOETAL EXPOSURE DURING PREGNANCY
     Dosage: MOTHER^S DOSE: 04 MG, UNK
     Route: 064

REACTIONS (62)
  - Ear pain [Unknown]
  - Urethral fistula [Unknown]
  - Right ventricular dysfunction [Unknown]
  - Dermatophytosis [Unknown]
  - Stomatitis [Unknown]
  - Ventricular septal defect [Unknown]
  - Pulmonary valve incompetence [Unknown]
  - Left atrial dilatation [Unknown]
  - Pulmonary valve thickening [Unknown]
  - Urethral meatus stenosis [Unknown]
  - Otorrhoea [Unknown]
  - Diarrhoea [Unknown]
  - Asthma [Unknown]
  - Hypospadias [Unknown]
  - Sepsis neonatal [Unknown]
  - Bundle branch block right [Unknown]
  - Middle ear effusion [Unknown]
  - Deafness [Unknown]
  - Otitis media [Unknown]
  - Upper respiratory tract infection [Unknown]
  - Headache [Unknown]
  - Chills [Unknown]
  - Oropharyngeal pain [Unknown]
  - Peripheral swelling [Unknown]
  - Patent ductus arteriosus [Unknown]
  - Right aortic arch [Unknown]
  - Left-to-right cardiac shunt [Unknown]
  - Left ventricle outflow tract obstruction [Unknown]
  - Pharyngitis [Unknown]
  - Abdominal pain [Unknown]
  - Ear infection [Unknown]
  - Pericardial effusion [Unknown]
  - Astigmatism [Unknown]
  - Rhinitis allergic [Unknown]
  - Viral upper respiratory tract infection [Unknown]
  - Fallot^s tetralogy [Unknown]
  - Penile torsion [Unknown]
  - Aortic valve incompetence [Unknown]
  - Right ventricular hypertrophy [Unknown]
  - Left ventricular dysfunction [Unknown]
  - Foetal exposure during pregnancy [Unknown]
  - Cardiomegaly [Unknown]
  - Transient tachypnoea of the newborn [Unknown]
  - Lung disorder [Unknown]
  - Cough [Unknown]
  - Nasal congestion [Unknown]
  - Dizziness [Unknown]
  - Heart disease congenital [Unknown]
  - Tricuspid valve incompetence [Unknown]
  - Mitral valve incompetence [Unknown]
  - Left ventricular dilatation [Unknown]
  - Conductive deafness [Unknown]
  - Cardiac murmur [Unknown]
  - Pyrexia [Unknown]
  - Otitis media chronic [Unknown]
  - Left ventricular enlargement [Unknown]
  - Pleural effusion [Unknown]
  - Premature baby [Unknown]
  - Pulmonary valve stenosis [Unknown]
  - Otitis media acute [Unknown]
  - Injury [Unknown]
  - Viral infection [Unknown]

NARRATIVE: CASE EVENT DATE: 20060510
